FAERS Safety Report 5564485-X (Version None)
Quarter: 2007Q4

REPORT INFORMATION
  Report Type: 
  Country: None (occurrence: None)
  Receive Date: 20071212
  Receipt Date: 20071203
  Transmission Date: 20080405
  Serious: Yes (Life-Threatening)
  Sender: FDA-Public Use
  Company Number: 2007P1000722

PATIENT
  Age: 25 Year
  Sex: Male

DRUGS (2)
  1. BUSULFAN (BUSULFAN) [Suspect]
     Indication: STEM CELL TRANSPLANT
     Dosage: 16 ML; QD;IV, 32 ML; QD; IV
     Route: 042
     Dates: start: 20070315, end: 20070316
  2. BUSULFAN (BUSULFAN) [Suspect]
     Indication: STEM CELL TRANSPLANT
     Dosage: 16 ML; QD;IV, 32 ML; QD; IV
     Route: 042
     Dates: start: 20070318, end: 20070319

REACTIONS (13)
  - ACUTE GRAFT VERSUS HOST DISEASE [None]
  - ANOREXIA [None]
  - BONE MARROW FAILURE [None]
  - BONE MARROW TRANSPLANT [None]
  - CYSTITIS HAEMORRHAGIC [None]
  - CYTOMEGALOVIRUS INFECTION [None]
  - DIARRHOEA [None]
  - MALAISE [None]
  - NAUSEA [None]
  - PHARYNGITIS BACTERIAL [None]
  - PSEUDOMONAS INFECTION [None]
  - STOMATITIS [None]
  - VOMITING [None]
